FAERS Safety Report 9886612 (Version 2)
Quarter: 2014Q1

REPORT INFORMATION
  Report Type: Spontaneous
  Country: ES (occurrence: ES)
  Receive Date: 20140210
  Receipt Date: 20140210
  Transmission Date: 20141002
  Serious: Yes (Other)
  Sender: FDA-Public Use
  Company Number: ES-ABBVIE-14P-144-1196910-00

PATIENT
  Age: 54 Year
  Sex: Female

DRUGS (6)
  1. HUMIRA [Suspect]
     Indication: PSORIASIS
     Dates: start: 201303
  2. INSULINE [Concomitant]
     Indication: DIABETES MELLITUS
  3. NOVOMIX [Concomitant]
     Indication: DIABETES MELLITUS
     Dosage: 30-30-0
     Route: 058
  4. LANTUS [Concomitant]
     Indication: DIABETES MELLITUS
     Dosage: 0-0-40
  5. THERVAN [Concomitant]
     Indication: DYSLIPIDAEMIA
     Route: 048
  6. SALAZOPYRINE [Concomitant]
     Indication: PRODUCT USED FOR UNKNOWN INDICATION
     Dosage: 2-0-2
     Route: 048

REACTIONS (4)
  - Retinal exudates [Unknown]
  - Maculopathy [Unknown]
  - Cataract [Unknown]
  - Retinal exudates [Unknown]
